FAERS Safety Report 7077533-5 (Version None)
Quarter: 2010Q4

REPORT INFORMATION
  Report Type: 
  Country: None (occurrence: None)
  Receive Date: 20101025
  Receipt Date: 20101019
  Transmission Date: 20110411
  Serious: Yes (Life-Threatening)
  Sender: FDA-Public Use
  Company Number: 20108182

PATIENT
  Sex: Male

DRUGS (1)
  1. LIORESAL [Suspect]
     Indication: MUSCLE SPASTICITY
     Dosage: 150 MCG, DAILY, INTRATHECAL
     Route: 037

REACTIONS (9)
  - CATHETER SITE INFECTION [None]
  - DEVICE MALFUNCTION [None]
  - HAEMATOMA [None]
  - NAUSEA [None]
  - OEDEMA [None]
  - SEROMA [None]
  - UNDERDOSE [None]
  - VOMITING [None]
  - WOUND INFECTION [None]
